FAERS Safety Report 5675454-3 (Version None)
Quarter: 2008Q2

REPORT INFORMATION
  Report Type: 
  Country: None (occurrence: None)
  Receive Date: 20080311
  Receipt Date: 20071205
  Transmission Date: 20081010
  Serious: No
  Sender: FDA-Public Use
  Company Number: 002#1#2007-00375

PATIENT
  Age: 72 Year
  Sex: Female

DRUGS (9)
  1. NEUPRO [Suspect]
     Indication: PARKINSON'S DISEASE
     Dosage: 2MG/24H,1 IN 1 D,TRANSDERMAL; 6MG/24H,1 IN 1 D, TRANSDERMAL
     Route: 062
     Dates: start: 20070101
  2. NEUPRO [Suspect]
     Indication: PARKINSON'S DISEASE
     Dosage: 2MG/24H,1 IN 1 D,TRANSDERMAL; 6MG/24H,1 IN 1 D, TRANSDERMAL
     Route: 062
     Dates: start: 20070828
  3. ASPIRIN [Concomitant]
  4. LIPITOR [Concomitant]
  5. (CARBIDOPA 25MG AND LEVODOPA 100MG), TABLETS [Concomitant]
  6. XALATAN [Concomitant]
  7. TRIAMTERENE AND HYDROCHLOROTHIAZIDE [Concomitant]
  8. TRUSOPT EYEDROPS [Concomitant]
  9. TIMOPTIC [Concomitant]

REACTIONS (3)
  - APPLICATION SITE ERYTHEMA [None]
  - APPLICATION SITE REACTION [None]
  - APPLICATION SITE WARMTH [None]
